FAERS Safety Report 14007137 (Version 1)
Quarter: 2017Q3

REPORT INFORMATION
  Report Type: Spontaneous
  Country: US (occurrence: US)
  Receive Date: 20170923
  Receipt Date: 20170923
  Transmission Date: 20171128
  Serious: No
  Sender: FDA-Public Use
  Company Number: None

PATIENT
  Age: 32 Year
  Sex: Female
  Weight: 63.9 kg

DRUGS (5)
  1. CREST PRO-HEALTH NOS [Suspect]
     Active Substance: CETYLPYRIDINIUM CHLORIDE OR STANNOUS FLUORIDE
     Indication: PROPHYLAXIS
     Route: 048
     Dates: start: 20170601, end: 20170923
  2. CREST PRO-HEALTH NOS [Suspect]
     Active Substance: CETYLPYRIDINIUM CHLORIDE OR STANNOUS FLUORIDE
     Indication: GINGIVITIS
     Route: 048
     Dates: start: 20170601, end: 20170923
  3. CREST PRO-HEALTH NOS [Suspect]
     Active Substance: CETYLPYRIDINIUM CHLORIDE OR STANNOUS FLUORIDE
     Indication: GINGIVAL DISORDER
     Route: 048
     Dates: start: 20170601, end: 20170923
  4. CLARITIN [Concomitant]
     Active Substance: LORATADINE
  5. PRENATAL VITAMINS [Suspect]
     Active Substance: VITAMINS

REACTIONS (3)
  - Tooth discolouration [None]
  - Gingival discolouration [None]
  - Product substitution issue [None]

NARRATIVE: CASE EVENT DATE: 20170831
